FAERS Safety Report 8826422 (Version 1)
Quarter: 2012Q4

REPORT INFORMATION
  Report Type: 
  Country: DE (occurrence: DE)
  Receive Date: 20121005
  Receipt Date: 20121005
  Transmission Date: 20130627
  Serious: Yes (Hospitalization, Congenital Anomaly, Other)
  Sender: FDA-Public Use
  Company Number: GXKR2012DE003093

PATIENT

DRUGS (4)
  1. CLOZAPINE [Suspect]
     Dosage: Maternal dose: 500 [mg/d (100-0-200-200) ]
     Route: 064
  2. LAMICTAL ODT TAB 200MG GLAXOSMITHKLINE [Suspect]
     Dosage: Maternal dose: 600 [mg/d (300-0-300) ]
     Route: 064
  3. KEPPRA [Suspect]
     Dosage: Maternal dose: 3000 [mg/d (1500-0-1500) ]
     Route: 064
  4. NASIVIN [Concomitant]
     Dosage: UNK, gw 34.1 to 34.2
     Route: 064

REACTIONS (8)
  - Atrial septal defect [Unknown]
  - Umbilical hernia [Recovered/Resolved with Sequelae]
  - Foetal growth restriction [Recovered/Resolved]
  - Small for dates baby [Recovering/Resolving]
  - Foetal distress syndrome [Recovered/Resolved]
  - Neonatal respiratory distress syndrome [Recovered/Resolved]
  - Foetal exposure during pregnancy [Unknown]
  - Caesarean section [None]
